FAERS Safety Report 4833984-8 (Version None)
Quarter: 2005Q4

REPORT INFORMATION
  Report Type: 
  Country: None (occurrence: None)
  Receive Date: 20051118
  Receipt Date: 20051118
  Transmission Date: 20060501
  Serious: Yes (Other)
  Sender: FDA-Public Use
  Company Number: None

PATIENT
  Age: 81 Year
  Sex: Male
  Weight: 75.8 kg

DRUGS (9)
  1. TERAZOSIN [Suspect]
  2. HYDROCHLOROTHIAZIDE [Concomitant]
  3. ADALAT CC [Concomitant]
  4. LORATADINE [Concomitant]
  5. CELECOXIB [Concomitant]
  6. OXCYCODONE 5 MG/ACETANUBIOGEB [Concomitant]
  7. CLOTRIMAZOLE [Concomitant]
  8. OMEPRAZOLE [Concomitant]
  9. POTASSIUM CHLORIDE [Concomitant]

REACTIONS (1)
  - URTICARIA [None]
